FAERS Safety Report 10425066 (Version 2)
Quarter: 2014Q3

REPORT INFORMATION
  Report Type: Spontaneous
  Country: US (occurrence: US)
  Receive Date: 20140902
  Receipt Date: 20140918
  Transmission Date: 20150326
  Serious: Yes (Other)
  Sender: FDA-Public Use
  Company Number: US-GLAXOSMITHKLINE-A1086728A

PATIENT
  Age: 60 Year
  Sex: Female

DRUGS (8)
  1. VIVELLE DOT [Concomitant]
     Active Substance: ESTRADIOL
  2. THYROID MEDICATION [Concomitant]
     Active Substance: UNSPECIFIED INGREDIENT
  3. PROGESTERONE. [Concomitant]
     Active Substance: PROGESTERONE
  4. RHINOCORT [Concomitant]
     Active Substance: BUDESONIDE
  5. ATACAND [Concomitant]
     Active Substance: CANDESARTAN CILEXETIL
  6. VALTREX [Suspect]
     Active Substance: VALACYCLOVIR HYDROCHLORIDE
     Indication: ORAL HERPES
     Dosage: 500MG PER DAY
     Dates: start: 2004
  7. TESTOSTERONE CREAM [Concomitant]
  8. HYDROCHLOROTHIAZIDE. [Concomitant]
     Active Substance: HYDROCHLOROTHIAZIDE

REACTIONS (5)
  - Bladder calculus removal [Unknown]
  - Bladder operation [Unknown]
  - Vesical fistula [Not Recovered/Not Resolved]
  - Calculus bladder [Unknown]
  - Bladder injury [Not Recovered/Not Resolved]

NARRATIVE: CASE EVENT DATE: 2012
